FAERS Safety Report 5408442-2 (Version None)
Quarter: 2007Q3

REPORT INFORMATION
  Report Type: 
  Country: None (occurrence: None)
  Receive Date: 20070808
  Receipt Date: 20070730
  Transmission Date: 20080115
  Serious: Yes (Hospitalization, Other)
  Sender: FDA-Public Use
  Company Number: CA-ROCHE-509470

PATIENT
  Sex: Male

DRUGS (2)
  1. PEGASYS [Suspect]
     Indication: HEPATITIS C
     Dosage: FORM: VIAL.
     Route: 058
     Dates: start: 20060901, end: 20070726
  2. COPEGUS [Suspect]
     Indication: HEPATITIS C
     Route: 048
     Dates: start: 20060901, end: 20070726

REACTIONS (5)
  - ASCITES [None]
  - CONFUSIONAL STATE [None]
  - OEDEMA PERIPHERAL [None]
  - PYELONEPHRITIS [None]
  - PYREXIA [None]
